FAERS Safety Report 8098308-4 (Version None)
Quarter: 2012Q1

REPORT INFORMATION
  Report Type: 
  Country: None (occurrence: None)
  Receive Date: 20120129
  Receipt Date: 20110930
  Transmission Date: 20120608
  Serious: No
  Sender: FDA-Public Use
  Company Number: US-ABBOTT-11P-163-0860272-00

PATIENT
  Sex: Male
  Weight: 72.64 kg

DRUGS (5)
  1. HUMIRA [Suspect]
     Indication: CROHN'S DISEASE
     Dates: start: 20110524
  2. APRISO [Concomitant]
     Indication: HAEMORRHAGE
  3. MAGNESIUM [Concomitant]
     Indication: MINERAL SUPPLEMENTATION
  4. XIFAXAN [Concomitant]
     Indication: INFECTION
  5. PROBIOTICS [Concomitant]
     Indication: GASTROINTESTINAL DISORDER

REACTIONS (6)
  - HAEMORRHAGE [None]
  - GASTROINTESTINAL PAIN [None]
  - CROHN'S DISEASE [None]
  - DEVICE MALFUNCTION [None]
  - WEIGHT INCREASED [None]
  - GASTROINTESTINAL HAEMORRHAGE [None]
